FAERS Safety Report 6421823-3 (Version None)
Quarter: 2009Q4

REPORT INFORMATION
  Report Type: 
  Country: None (occurrence: None)
  Receive Date: 20091030
  Receipt Date: 20091029
  Transmission Date: 20100525
  Serious: Yes (Hospitalization)
  Sender: FDA-Public Use
  Company Number: B0599507A

PATIENT
  Sex: Male

DRUGS (3)
  1. RANIPLEX [Suspect]
     Indication: DRUG USE FOR UNKNOWN INDICATION
     Route: 048
     Dates: start: 20090619, end: 20090726
  2. IBUPROFENE [Suspect]
     Indication: URINARY TRACT INFECTION
     Route: 048
     Dates: start: 20090619, end: 20090726
  3. OFLOXACIN [Suspect]
     Indication: URINARY TRACT INFECTION
     Route: 048
     Dates: start: 20090619, end: 20090726

REACTIONS (4)
  - ANAEMIA [None]
  - HAEMATEMESIS [None]
  - MELAENA [None]
  - PALLOR [None]
